FAERS Safety Report 7120430-7 (Version None)
Quarter: 2010Q4

REPORT INFORMATION
  Report Type: 
  Country: None (occurrence: None)
  Receive Date: 20101124
  Receipt Date: 20101115
  Transmission Date: 20110411
  Serious: No
  Sender: FDA-Public Use
  Company Number: US-BIOGENIDEC-2010BI040510

PATIENT
  Age: 42 Year
  Sex: Female

DRUGS (2)
  1. TYSABRI [Suspect]
     Indication: MULTIPLE SCLEROSIS
     Route: 042
     Dates: start: 20090904, end: 20100520
  2. TYSABRI [Suspect]
     Route: 042
     Dates: start: 20100715

REACTIONS (3)
  - DYSGEUSIA [None]
  - VISUAL ACUITY REDUCED [None]
  - WEIGHT DECREASED [None]
